FAERS Safety Report 15776372 (Version 1)
Quarter: 2018Q4

REPORT INFORMATION
  Report Type: Spontaneous
  Country: SA (occurrence: SA)
  Receive Date: 20181231
  Receipt Date: 20181231
  Transmission Date: 20190205
  Serious: Yes (Other)
  Sender: FDA-Public Use
  Company Number: SA-TAKEDA-2018TJP029903

PATIENT
  Age: 45 Year
  Sex: Female

DRUGS (1)
  1. LANZOR TABS [Suspect]
     Active Substance: LANSOPRAZOLE
     Indication: GASTROOESOPHAGEAL REFLUX DISEASE
     Dosage: 30 MG, BID
     Route: 048

REACTIONS (1)
  - Drug abuse [Unknown]
